FAERS Safety Report 8471404-5 (Version None)
Quarter: 2012Q2

REPORT INFORMATION
  Report Type: 
  Country: None (occurrence: None)
  Receive Date: 20120323
  Receipt Date: 20111103
  Transmission Date: 20120825
  Serious: Yes (Hospitalization)
  Sender: FDA-Public Use
  Company Number: 163-21880-11110863

PATIENT
  Age: 74 Year
  Sex: Male

DRUGS (4)
  1. NITROGLYCERIN [Concomitant]
  2. REVLIMID [Suspect]
     Indication: MULTIPLE MYELOMA
     Dosage: 25 MG, DAILY FOR DAYS 1-21 OUT OF 28 DAYS, PO ; 15 MG, 1 IN 1 D, PO
     Route: 048
     Dates: start: 20111001
  3. REVLIMID [Suspect]
     Indication: MULTIPLE MYELOMA
     Dosage: 25 MG, DAILY FOR DAYS 1-21 OUT OF 28 DAYS, PO ; 15 MG, 1 IN 1 D, PO
     Route: 048
     Dates: start: 20100517
  4. PLAVIX [Concomitant]

REACTIONS (1)
  - PULMONARY EMBOLISM [None]
